FAERS Safety Report 24768301 (Version 1)
Quarter: 2024Q4

REPORT INFORMATION
  Report Type: Report from Study
  Country: US (occurrence: US)
  Receive Date: 20241223
  Receipt Date: 20241223
  Transmission Date: 20250114
  Serious: Yes (Hospitalization, Other)
  Sender: ABBVIE
  Company Number: US-ABBVIE-6012532

PATIENT
  Age: 82 Year
  Sex: Female
  Weight: 56.699 kg

DRUGS (2)
  1. HUMIRA [Suspect]
     Active Substance: ADALIMUMAB
     Indication: Crohn^s disease
     Dosage: FORM STRENGTH: 40 MILLIGRAM. FIRST ADMINISTRATION DATE: SEVERAL YEARS AGO. CITRATE FREE
     Route: 058
     Dates: end: 20241113
  2. HUMIRA [Suspect]
     Active Substance: ADALIMUMAB
     Dosage: FORM STRENGTH: 40 MILLIGRAM.. CITRATE FREE. FIRST ADMINISTRATION DATE: 2024
     Route: 058

REACTIONS (5)
  - Wrist fracture [Recovering/Resolving]
  - Arthralgia [Recovering/Resolving]
  - Upper limb fracture [Recovering/Resolving]
  - Fall [Recovered/Resolved]
  - Fatigue [Recovering/Resolving]

NARRATIVE: CASE EVENT DATE: 20241101
